FAERS Safety Report 21433623 (Version 1)
Quarter: 2022Q4

REPORT INFORMATION
  Report Type: Spontaneous
  Country: JP (occurrence: JP)
  Receive Date: 20221010
  Receipt Date: 20221010
  Transmission Date: 20230112
  Serious: Yes (Death, Hospitalization)
  Sender: FDA-Public Use
  Company Number: JP-NBI-J202213710BIPI

PATIENT
  Age: 94 Year
  Sex: Male
  Weight: 50 kg

DRUGS (1)
  1. OFEV [Suspect]
     Active Substance: NINTEDANIB
     Indication: Idiopathic pulmonary fibrosis
     Route: 048
     Dates: start: 20220701

REACTIONS (7)
  - Weight decreased [Fatal]
  - Hypophagia [Fatal]
  - Chest X-ray abnormal [Fatal]
  - Wheezing [Not Recovered/Not Resolved]
  - Fall [Unknown]
  - Dyspnoea [Not Recovered/Not Resolved]
  - Faeces hard [Not Recovered/Not Resolved]

NARRATIVE: CASE EVENT DATE: 20220804
